FAERS Safety Report 4595772-X (Version None)
Quarter: 2005Q1

REPORT INFORMATION
  Report Type: 
  Country: None (occurrence: None)
  Receive Date: 20050224
  Receipt Date: 20050211
  Transmission Date: 20050727
  Serious: Yes (Hospitalization)
  Sender: FDA-Public Use
  Company Number: 2004229853SE

PATIENT
  Sex: Female

DRUGS (3)
  1. PREDNISONE [Suspect]
     Indication: INTERVERTEBRAL DISC DISPLACEMENT
     Dates: start: 20010601
  2. ESTRADIOL VALERATE (ESTRADIOL VALERATE) [Concomitant]
  3. RIZATRIPTAN BENZOATE (RIZATRIPTAN BENZOATE) [Concomitant]

REACTIONS (6)
  - BONE DISORDER [None]
  - FEELING ABNORMAL [None]
  - GASTRIC DISORDER [None]
  - IMPAIRED HEALING [None]
  - INTERVERTEBRAL DISC PROTRUSION [None]
  - SKIN DISORDER [None]
